FAERS Safety Report 8723618 (Version 2)
Quarter: 2012Q4

REPORT INFORMATION
  Report Type: 
  Country: US (occurrence: US)
  Receive Date: 20120815
  Receipt Date: 20121008
  Transmission Date: 20130627
  Serious: No
  Sender: FDA-Public Use
  Company Number: US-009507513-1208USA004201

PATIENT
  Age: 42 Year
  Sex: Female
  Weight: 90.7 kg

DRUGS (2)
  1. SINGULAIR [Suspect]
     Indication: ASTHMA
     Dosage: 10 mg, Once
     Route: 048
  2. SINGULAIR [Suspect]
     Dosage: 10 mg, qd
     Route: 048
     Dates: start: 200708

REACTIONS (6)
  - Pyrexia [Recovered/Resolved]
  - Rash pruritic [Recovered/Resolved]
  - Expired drug administered [Unknown]
  - Malaise [Unknown]
  - Echo virus infection [Unknown]
  - Rash maculo-papular [None]
